FAERS Safety Report 11986420 (Version 1)
Quarter: 2016Q1

REPORT INFORMATION
  Report Type: Spontaneous
  Country: None (occurrence: None)
  Receive Date: 20160201
  Receipt Date: 20160201
  Transmission Date: 20160526
  Serious: Yes (Death, Other)
  Sender: FDA-Public Use
  Company Number: None

PATIENT
  Age: 4 Year
  Sex: Male

DRUGS (4)
  1. LUNESTA [Concomitant]
     Active Substance: ESZOPICLONE
  2. HYDROCODONE [Concomitant]
     Active Substance: HYDROCODONE
  3. MOTRIN [Concomitant]
     Active Substance: IBUPROFEN
  4. LUNESTA [Suspect]
     Active Substance: ESZOPICLONE
     Indication: OFF LABEL USE
     Dosage: OVERDOSE
     Route: 048

REACTIONS (7)
  - Intentional product use issue [None]
  - Intentional overdose [None]
  - Incorrect dose administered [None]
  - Intentional product misuse [None]
  - Victim of child abuse [None]
  - Off label use [None]
  - Toxicity to various agents [None]

NARRATIVE: CASE EVENT DATE: 20090909
